FAERS Safety Report 7515106-8 (Version None)
Quarter: 2011Q2

REPORT INFORMATION
  Report Type: 
  Country: None (occurrence: None)
  Receive Date: 20110601
  Receipt Date: 20110525
  Transmission Date: 20111010
  Serious: Yes (Other)
  Sender: FDA-Public Use
  Company Number: US-MYLANLABS-2011S1010584

PATIENT
  Age: 16 Year
  Sex: Male

DRUGS (4)
  1. AMNESTEEM [Suspect]
     Indication: ACNE
     Route: 048
     Dates: start: 20110101, end: 20110201
  2. AMNESTEEM [Suspect]
     Route: 048
     Dates: start: 20110201, end: 20110301
  3. ZOLOFT [Concomitant]
     Indication: DEPRESSION
     Route: 048
  4. AMNESTEEM [Suspect]
     Route: 048
     Dates: start: 20110301, end: 20110520

REACTIONS (2)
  - VIOLENCE-RELATED SYMPTOM [None]
  - SUICIDAL IDEATION [None]
